FAERS Safety Report 8170282-1 (Version None)
Quarter: 2012Q1

REPORT INFORMATION
  Report Type: 
  Country: None (occurrence: None)
  Receive Date: 20120228
  Receipt Date: 20120223
  Transmission Date: 20120608
  Serious: Yes (Death)
  Sender: FDA-Public Use
  Company Number: PHHY2012AR016192

PATIENT
  Sex: Male

DRUGS (5)
  1. AMLODIPINE [Concomitant]
  2. CARVEDILOL [Concomitant]
  3. DIOVAN [Suspect]
     Indication: HYPERTENSION
     Dosage: 80 MG, DAILY
     Dates: start: 20100101
  4. EXELON [Suspect]
     Indication: AMNESIA
     Dosage: PATCH 10 (CM2) / DAILY DOSE 9.5 MG
     Route: 062
     Dates: start: 20090101
  5. SIMVASTATIN [Concomitant]

REACTIONS (1)
  - CARDIO-RESPIRATORY ARREST [None]
